FAERS Safety Report 10289524 (Version 2)
Quarter: 2015Q2

REPORT INFORMATION
  Report Type: Report from Study
  Country: CA (occurrence: CA)
  Receive Date: 20140710
  Receipt Date: 20150416
  Transmission Date: 20150821
  Serious: Yes (Other)
  Sender: FDA-Public Use
  Company Number: PHHY2014CA083688

PATIENT
  Sex: Male

DRUGS (3)
  1. TASIGNA [Suspect]
     Active Substance: NILOTINIB
     Indication: CHRONIC MYELOID LEUKAEMIA
     Route: 065
  2. TASIGNA [Suspect]
     Active Substance: NILOTINIB
     Dosage: 300 MG, BID
     Route: 048
     Dates: start: 201405
  3. SYNTHROID [Concomitant]
     Active Substance: LEVOTHYROXINE SODIUM
     Indication: PRODUCT USED FOR UNKNOWN INDICATION
     Route: 065

REACTIONS (14)
  - Memory impairment [Unknown]
  - Weight decreased [Unknown]
  - Thyroid disorder [Unknown]
  - Poor quality sleep [Unknown]
  - Platelet count decreased [Unknown]
  - Pain [Unknown]
  - Feeling abnormal [Unknown]
  - Pyrexia [Unknown]
  - Diverticulitis [Unknown]
  - Bladder pain [Unknown]
  - Rash pruritic [Recovered/Resolved]
  - Vertigo [Unknown]
  - Malaise [Unknown]
  - Wrong drug administered [Unknown]
